FAERS Safety Report 9464046 (Version 27)
Quarter: 2020Q4

REPORT INFORMATION
  Report Type: Report from Study
  Country: US (occurrence: US)
  Receive Date: 20130819
  Receipt Date: 20201020
  Transmission Date: 20210114
  Serious: Yes (Hospitalization, Other)
  Sender: FDA-Public Use
  Company Number: US-SANOFI-AVENTIS-2013SA065909

PATIENT
  Age: 68 Year
  Sex: Female
  Weight: 56 kg

DRUGS (17)
  1. TERIFLUNOMIDE. [Suspect]
     Active Substance: TERIFLUNOMIDE
     Dosage: 14 MG,QD (BEDTIME)
     Route: 048
     Dates: start: 20141118
  2. TERIFLUNOMIDE. [Suspect]
     Active Substance: TERIFLUNOMIDE
     Dosage: 14 MG,QD (BEDTIME)
     Route: 048
     Dates: start: 20141118
  3. AMPYRA [Concomitant]
     Active Substance: DALFAMPRIDINE
     Indication: GAIT DISTURBANCE
     Dosage: 10 MG,BID
     Route: 065
     Dates: start: 201512
  4. ESCITALOPRAM [Concomitant]
     Active Substance: ESCITALOPRAM OXALATE
     Dosage: 10 MG,QD
     Route: 065
  5. TOVIAZ [Concomitant]
     Active Substance: FESOTERODINE FUMARATE
     Indication: URINARY INCONTINENCE
     Dosage: 8 MG,UNK
     Route: 065
  6. DOXYCYCLINE. [Concomitant]
     Active Substance: DOXYCYCLINE
     Indication: ROSACEA
     Dosage: 100 MG,HS
     Route: 065
  7. METHYLPREDNISOLONE. [Concomitant]
     Active Substance: METHYLPREDNISOLONE
     Dosage: UNK
     Route: 065
  8. TERIFLUNOMIDE. [Suspect]
     Active Substance: TERIFLUNOMIDE
     Dosage: 14 MG, QD
     Route: 048
     Dates: start: 201310
  9. FLUTICASONE. [Concomitant]
     Active Substance: FLUTICASONE
     Dosage: UNK UNK,UNK
     Route: 065
  10. TERIFLUNOMIDE. [Suspect]
     Active Substance: TERIFLUNOMIDE
     Dosage: 14 MG,QD (BEDTIME)
     Route: 048
     Dates: start: 20130218
  11. TERIFLUNOMIDE. [Suspect]
     Active Substance: TERIFLUNOMIDE
     Dosage: 14 MG,QD (BEDTIME)
     Route: 048
     Dates: start: 20130301
  12. TERIFLUNOMIDE. [Suspect]
     Active Substance: TERIFLUNOMIDE
     Indication: MULTIPLE SCLEROSIS
     Dosage: 14 MG, QD (AT BEDTIME)
     Route: 048
     Dates: start: 20130218
  13. TRAZODONE [Concomitant]
     Active Substance: TRAZODONE HYDROCHLORIDE
     Indication: DEPRESSION
     Dosage: 100 MG,HS
     Route: 065
  14. METHYLPREDNISOLONE. [Concomitant]
     Active Substance: METHYLPREDNISOLONE
     Dosage: UNK
     Route: 065
     Dates: start: 1997
  15. TERIFLUNOMIDE. [Suspect]
     Active Substance: TERIFLUNOMIDE
     Dosage: 14 MG,QD (BEDTIME)
     Route: 048
     Dates: start: 20130218
  16. COLESTIPOL [Concomitant]
     Active Substance: COLESTIPOL
     Indication: FUNCTIONAL GASTROINTESTINAL DISORDER
     Dosage: 1 G,QD
     Route: 065
  17. PROLIA [Concomitant]
     Active Substance: DENOSUMAB
     Indication: OSTEOPOROSIS
     Dosage: EVERY 4 MONTHS
     Route: 065
     Dates: start: 2015

REACTIONS (43)
  - Dumping syndrome [Recovered/Resolved]
  - Arthralgia [Recovered/Resolved]
  - Hemiparesis [Recovered/Resolved]
  - Flatulence [Unknown]
  - Liver function test increased [Unknown]
  - Hypoacusis [Not Recovered/Not Resolved]
  - Band sensation [Unknown]
  - Fall [Unknown]
  - Stress [Not Recovered/Not Resolved]
  - Condition aggravated [Unknown]
  - Urinary incontinence [Recovered/Resolved]
  - Drug ineffective [Recovered/Resolved]
  - Hair texture abnormal [Recovered/Resolved]
  - Discomfort [Recovered/Resolved]
  - Drug hypersensitivity [Unknown]
  - Nasopharyngitis [Not Recovered/Not Resolved]
  - Defaecation urgency [Unknown]
  - Eating disorder [Unknown]
  - Contusion [Unknown]
  - Hypoaesthesia [Unknown]
  - Non-cardiac chest pain [Recovered/Resolved]
  - Foot fracture [Unknown]
  - Heart rate increased [Recovered/Resolved]
  - Micturition urgency [Unknown]
  - Incontinence [Unknown]
  - Ligament sprain [Unknown]
  - Foot fracture [Recovered/Resolved]
  - Head injury [Recovered/Resolved]
  - Alopecia [Unknown]
  - Diarrhoea [Not Recovered/Not Resolved]
  - Memory impairment [Recovered/Resolved]
  - Nasal congestion [Unknown]
  - Burning sensation [Recovered/Resolved]
  - Multiple sclerosis [Recovered/Resolved]
  - Pollakiuria [Unknown]
  - Depression [Unknown]
  - Back pain [Recovered/Resolved]
  - Cholelithiasis [Recovered/Resolved]
  - Multiple sclerosis relapse [Recovered/Resolved]
  - Musculoskeletal chest pain [Recovered/Resolved]
  - Paraesthesia [Recovered/Resolved]
  - Anxiety [Unknown]
  - Asthenia [Recovered/Resolved]

NARRATIVE: CASE EVENT DATE: 201303
